FAERS Safety Report 25374411 (Version 1)
Quarter: 2025Q2

REPORT INFORMATION
  Report Type: Spontaneous
  Country: US (occurrence: US)
  Receive Date: 20250529
  Receipt Date: 20250529
  Transmission Date: 20250716
  Serious: No
  Sender: Unknown Manufacturer
  Company Number: US-KALEO, INC.-2025KL000007

PATIENT
  Age: 17 Month
  Sex: Male

DRUGS (1)
  1. AUVI-Q [Suspect]
     Active Substance: EPINEPHRINE
     Indication: Anaphylactic reaction

REACTIONS (2)
  - Device failure [Not Recovered/Not Resolved]
  - Device audio issue [Not Recovered/Not Resolved]

NARRATIVE: CASE EVENT DATE: 20250412
